FAERS Safety Report 5624176-3 (Version None)
Quarter: 2008Q1

REPORT INFORMATION
  Report Type: 
  Country: None (occurrence: None)
  Receive Date: 20080213
  Receipt Date: 20080208
  Transmission Date: 20080703
  Serious: Yes (Hospitalization)
  Sender: FDA-Public Use
  Company Number: PHNU2008DE00897

PATIENT
  Sex: Female

DRUGS (23)
  1. EXELON [Suspect]
     Indication: DEMENTIA
     Dosage: 4.6 MG/24 HR PATCH
     Route: 062
     Dates: start: 20071021
  2. ZYPREXA [Suspect]
     Dosage: 2.5 MG/DAY
     Route: 048
     Dates: start: 20071016, end: 20071016
  3. ZYPREXA [Suspect]
     Dosage: UP TO 15 MG/DAY
     Route: 048
     Dates: start: 20071017, end: 20071108
  4. ZYPREXA [Suspect]
     Dosage: 17.5 MG/DAY
     Route: 048
     Dates: start: 20071109, end: 20071113
  5. ZYPREXA [Suspect]
     Dosage: 15 MG/DAY
     Route: 048
     Dates: start: 20071114, end: 20071117
  6. ZYPREXA [Suspect]
     Dosage: 17.5 MG/DAY
     Route: 048
     Dates: start: 20071118, end: 20071119
  7. ZYPREXA [Suspect]
     Dosage: 15 MG/DAY
     Route: 048
     Dates: start: 20071120, end: 20071120
  8. ZYPREXA [Suspect]
     Dosage: 17.5 MG/DAY
     Route: 048
     Dates: start: 20071121, end: 20071122
  9. ZYPREXA [Suspect]
     Dosage: 10 MG/DAY
     Route: 048
     Dates: start: 20071123, end: 20071125
  10. MELPERONE [Suspect]
     Dosage: 25 MG/DAY
     Route: 048
     Dates: start: 20071121, end: 20071124
  11. TAVOR [Suspect]
     Dosage: 0.5 DF, QD
     Route: 048
     Dates: start: 20071010, end: 20071010
  12. TAVOR [Suspect]
     Dosage: 1 DF, QD
     Route: 048
     Dates: start: 20071012, end: 20071012
  13. TAVOR [Suspect]
     Dosage: 0.5 DF, QD
     Route: 048
     Dates: start: 20071013
  14. RISPERDAL [Suspect]
     Dosage: 0.5 MG/DAY
     Route: 048
     Dates: start: 20071113, end: 20071113
  15. RISPERDAL [Suspect]
     Dosage: 1.5 MG/DAY
     Route: 048
     Dates: start: 20071114, end: 20071115
  16. RISPERDAL [Suspect]
     Dosage: 2 MG/DAY
     Route: 048
     Dates: start: 20071116, end: 20071118
  17. RISPERDAL [Suspect]
     Dosage: 3 MG/DAY
     Route: 048
     Dates: start: 20071119, end: 20071120
  18. RISPERDAL [Suspect]
     Dosage: 3.5 MG/DAY
     Route: 048
     Dates: start: 20071121
  19. TRIAMTEREN [Suspect]
     Indication: HYPERTENSION
     Dosage: 12.5 - 6.25 MG
     Route: 048
     Dates: start: 20071013, end: 20071120
  20. TRIAMTEREN [Suspect]
     Dosage: 25MG - 12.5 MG - 0
     Route: 048
     Dates: start: 20071121
  21. VENOSTASIN [Concomitant]
     Dosage: 50 MG/DAY
     Route: 048
  22. DEXIUM ^SYNTHELABO^ [Concomitant]
     Indication: EYE DISORDER
     Dosage: 500 MG/DAY
     Route: 048
  23. OVESTIN [Concomitant]
     Dosage: 1 MG/DAY
     Route: 048

REACTIONS (8)
  - CONTUSION [None]
  - EPISTAXIS [None]
  - FACIAL BONES FRACTURE [None]
  - FALL [None]
  - HAEMATOMA [None]
  - PAIN [None]
  - SKIN LACERATION [None]
  - X-RAY ABNORMAL [None]
